FAERS Safety Report 8962792 (Version 2)
Quarter: 2013Q1

REPORT INFORMATION
  Report Type: Spontaneous
  Country: US (occurrence: US)
  Receive Date: 20121213
  Receipt Date: 20130131
  Transmission Date: 20140127
  Serious: No
  Sender: FDA-Public Use
  Company Number: US-PFIZER INC-2012312391

PATIENT
  Age: 11 Year
  Sex: Male

DRUGS (1)
  1. CHILDRENS ADVIL [Suspect]
     Dosage: UNK

REACTIONS (3)
  - Dysphagia [Unknown]
  - Retching [Unknown]
  - Product physical issue [Unknown]
